FAERS Safety Report 8830687 (Version 1)
Quarter: 2012Q4

REPORT INFORMATION
  Report Type: 
  Country: CN (occurrence: CN)
  Receive Date: 20121009
  Receipt Date: 20121009
  Transmission Date: 20130627
  Serious: Yes (Other)
  Sender: FDA-Public Use
  Company Number: PHHY2012CN086986

PATIENT

DRUGS (5)
  1. CICLOSPORIN [Suspect]
     Indication: IMMUNOSUPPRESSANT DRUG THERAPY
     Dosage: 10 mg/kg, UNK
     Route: 048
  2. MIDAZOLAM [Concomitant]
  3. OMEPRAZOLE [Concomitant]
  4. HEPARIN [Concomitant]
     Dosage: 150-300 IE/(kg?h)
  5. PROSTAGLANDIN E1 [Concomitant]
     Dosage: 5-10 ug, UNK
     Route: 048

REACTIONS (2)
  - Ascites [Unknown]
  - Staphylococcal infection [Unknown]
